FAERS Safety Report 9058596 (Version 3)
Quarter: 2013Q3

REPORT INFORMATION
  Report Type: Report from Study
  Country: JP (occurrence: JP)
  Receive Date: 20130211
  Receipt Date: 20130912
  Transmission Date: 20140515
  Serious: Yes (Death)
  Sender: FDA-Public Use
  Company Number: JP-B.I. PHARMACEUTICALS,INC./RIDGEFIELD-2013-RU-00116BP

PATIENT
  Age: 69 Year
  Sex: Male
  Weight: 60.5 kg

DRUGS (14)
  1. BI 1744+TIOTROPIUM [Suspect]
     Indication: CHRONIC OBSTRUCTIVE PULMONARY DISEASE
     Route: 055
     Dates: start: 20120221, end: 20130127
  2. TENORMIN TABLETS [Concomitant]
     Indication: HYPERTENSION
     Dosage: 50 MG
     Route: 048
     Dates: end: 20130127
  3. BLOPRESS TABLETS [Concomitant]
     Indication: HYPERTENSION
     Dosage: 8 MG
     Route: 048
     Dates: end: 20130127
  4. AMLODIN [Concomitant]
     Indication: HYPERTENSION
     Dosage: 3.75 MG
     Route: 048
     Dates: end: 20130127
  5. ANPLAG TABLETS [Concomitant]
     Indication: PERIPHERAL ARTERIAL OCCLUSIVE DISEASE
     Dosage: 300 MG
     Route: 048
     Dates: end: 20130127
  6. DORNER TABLETS [Concomitant]
     Indication: PERIPHERAL ARTERIAL OCCLUSIVE DISEASE
     Dosage: 120 MCG
     Route: 048
     Dates: end: 20130127
  7. TAKEPRON OD TABLETS [Concomitant]
     Indication: GASTRITIS PROPHYLAXIS
     Dosage: 15 MG
     Route: 048
     Dates: end: 20130127
  8. FK POWDER [Concomitant]
     Indication: GASTRITIS PROPHYLAXIS
     Dosage: 3.9 MG
     Route: 048
     Dates: end: 20130127
  9. FELNABION TAPE [Concomitant]
     Indication: PERIPHERAL ARTERIAL OCCLUSIVE DISEASE
     Route: 061
     Dates: end: 20130127
  10. WARFARIN [Concomitant]
     Indication: PERIPHERAL ARTERIAL OCCLUSIVE DISEASE
     Dosage: 2.5 MG
     Route: 048
     Dates: start: 20120516, end: 20130127
  11. BAYASPIRIN [Concomitant]
     Indication: PERIPHERAL ARTERIAL OCCLUSIVE DISEASE
     Dosage: 100 MG
     Route: 048
     Dates: start: 20120516, end: 20130127
  12. METGLUCO [Concomitant]
     Indication: DIABETES MELLITUS
     Dosage: 500 MG
     Route: 048
     Dates: start: 20120807, end: 20130127
  13. DUOTRAV COMBINATION OPHTHALMIC SOLUTION [Concomitant]
     Indication: GLAUCOMA
     Route: 047
     Dates: end: 20130127
  14. PRORANON OPHTHALMIC SOLUTION 0.1 [Concomitant]
     Indication: CATARACT
     Route: 047
     Dates: start: 20121120, end: 20130127

REACTIONS (1)
  - Aortic aneurysm rupture [Fatal]
